FAERS Safety Report 22968149 (Version 2)
Quarter: 2023Q4

REPORT INFORMATION
  Report Type: Spontaneous
  Country: FI (occurrence: FI)
  Receive Date: 20230921
  Receipt Date: 20231102
  Transmission Date: 20240110
  Serious: Yes (Hospitalization)
  Sender: FDA-Public Use
  Company Number: FI-002147023-NVSC2023FI200114

PATIENT
  Age: 55 Year
  Sex: Female

DRUGS (3)
  1. CYCLOSPORINE [Suspect]
     Active Substance: CYCLOSPORINE
     Indication: Urticaria
     Dosage: 1 DOSAGE FORM, BID (IN THE MORNING AND IN THE EVENING)
     Route: 065
     Dates: start: 20230912, end: 20230913
  2. CYCLOSPORINE [Suspect]
     Active Substance: CYCLOSPORINE
     Indication: Anaphylaxis prophylaxis
  3. SOTALOL [Concomitant]
     Active Substance: SOTALOL
     Indication: Ventricular extrasystoles
     Dosage: UNK
     Route: 065

REACTIONS (12)
  - Anaphylactic reaction [Unknown]
  - Cough [Unknown]
  - Dyspnoea [Unknown]
  - Wheezing [Unknown]
  - Respiratory rate increased [Unknown]
  - Erythema [Recovered/Resolved]
  - Dysphonia [Not Recovered/Not Resolved]
  - Obstruction [Unknown]
  - Oxygen saturation decreased [Unknown]
  - PO2 decreased [Unknown]
  - Urticaria [Recovered/Resolved]
  - Product use in unapproved indication [Unknown]

NARRATIVE: CASE EVENT DATE: 20230901
